FAERS Safety Report 5144206-5 (Version None)
Quarter: 2006Q4

REPORT INFORMATION
  Report Type: 
  Country: None (occurrence: None)
  Receive Date: 20061106
  Receipt Date: 20061003
  Transmission Date: 20070319
  Serious: Yes (Hospitalization, Other)
  Sender: FDA-Public Use
  Company Number: AT-NOVOPROD-257444

PATIENT
  Age: 75 Year
  Sex: Male
  Weight: 81 kg

DRUGS (7)
  1. NOVOSEVEN [Suspect]
     Indication: CEREBRAL HAEMORRHAGE
     Dosage: 20 UG/KG, UNK
     Route: 042
     Dates: start: 20060925, end: 20060925
  2. NADROPARIN [Concomitant]
     Dosage: .4 ML, QD
     Route: 058
     Dates: start: 20060926
  3. RANITIDINE HCL [Concomitant]
     Dosage: 300 MG, QD
     Route: 048
     Dates: start: 20060928
  4. ENALAPRIL MALEATE [Concomitant]
     Dosage: 5 MG, QD
     Route: 048
     Dates: start: 20060930
  5. FLUCLOXACILLIN [Concomitant]
     Dosage: 6 G, QD
     Route: 042
     Dates: start: 20060930
  6. OXAZEPAM [Concomitant]
     Dosage: 25 MG, QD
     Route: 048
     Dates: start: 20060928
  7. URAPIDIL [Concomitant]
     Dosage: 10 MG/H, QD
     Route: 042
     Dates: start: 20060925

REACTIONS (2)
  - THROMBOCYTOPENIA [None]
  - THROMBOPHLEBITIS [None]
